FAERS Safety Report 7016257-7 (Version None)
Quarter: 2010Q3

REPORT INFORMATION
  Report Type: 
  Country: None (occurrence: None)
  Receive Date: 20100927
  Receipt Date: 20100922
  Transmission Date: 20110219
  Serious: Yes (Death)
  Sender: FDA-Public Use
  Company Number: US-CELGENEUS-163-21880-10092193

PATIENT
  Sex: Female

DRUGS (2)
  1. REVLIMID [Suspect]
     Indication: MULTIPLE MYELOMA
     Dosage: 25-15MG
     Route: 048
     Dates: start: 20070501
  2. REVLIMID [Suspect]
     Route: 048
     Dates: start: 20100301, end: 20100101

REACTIONS (1)
  - MULTIPLE MYELOMA [None]
